FAERS Safety Report 8323840 (Version 3)
Quarter: 2013Q2

REPORT INFORMATION
  Report Type: Spontaneous
  Country: US (occurrence: US)
  Receive Date: 20120105
  Receipt Date: 20130417
  Transmission Date: 20140414
  Serious: Yes (Hospitalization, Other)
  Sender: FDA-Public Use
  Company Number: US-ASTRAZENECA-2012SE00354

PATIENT
  Age: 78 Year
  Sex: Female

DRUGS (3)
  1. NEXIUM [Suspect]
     Route: 048
  2. ZANTAC [Concomitant]
  3. PLAVIX [Concomitant]

REACTIONS (10)
  - Aspiration [Unknown]
  - Transient ischaemic attack [Unknown]
  - Demyelination [Unknown]
  - Pneumonia [Unknown]
  - Cardiac disorder [Unknown]
  - Hyperglycaemia [Unknown]
  - Lung disorder [Unknown]
  - Influenza [Unknown]
  - Malaise [Unknown]
  - Drug dose omission [Unknown]
